FAERS Safety Report 24036172 (Version 4)
Quarter: 2024Q3

REPORT INFORMATION
  Report Type: Report from Study
  Country: US (occurrence: US)
  Receive Date: 20240701
  Receipt Date: 20240905
  Transmission Date: 20241017
  Serious: Yes (Hospitalization, Other)
  Sender: MERCK
  Company Number: US-009507513-2406USA007415

PATIENT
  Sex: Female
  Weight: 66.667 kg

DRUGS (7)
  1. SOTATERCEPT [Suspect]
     Active Substance: SOTATERCEPT
     Indication: Pulmonary arterial hypertension
     Dosage: STRENGTH: 45 MG, 0.5 ML Q3W
     Route: 058
     Dates: start: 202405, end: 20240624
  2. SOTATERCEPT [Suspect]
     Active Substance: SOTATERCEPT
     Dosage: STRENGTH: 45 MG, 0.5 ML Q3W
     Route: 058
     Dates: start: 202405
  3. WINREVAIR [Suspect]
     Active Substance: SOTATERCEPT-CSRK
     Indication: Pulmonary arterial hypertension
     Dosage: 0.4 MILLILITER, Q3W
     Route: 058
     Dates: start: 202405
  4. TADALAFIL [Concomitant]
     Active Substance: TADALAFIL
  5. UPTRAVI [Concomitant]
     Active Substance: SELEXIPAG
  6. VELETRI [Concomitant]
     Active Substance: EPOPROSTENOL
  7. OPSUMIT [Concomitant]
     Active Substance: MACITENTAN

REACTIONS (8)
  - Hospitalisation [Unknown]
  - Thrombocytopenia [Not Recovered/Not Resolved]
  - Blood potassium decreased [Unknown]
  - Decreased appetite [Unknown]
  - Flushing [Unknown]
  - Epistaxis [Recovered/Resolved]
  - Rash [Recovering/Resolving]
  - Epistaxis [Recovered/Resolved]

NARRATIVE: CASE EVENT DATE: 20240101
